FAERS Safety Report 9322784 (Version 1)
Quarter: 2013Q2

REPORT INFORMATION
  Report Type: Report from Study
  Country: TH (occurrence: TH)
  Receive Date: 20130601
  Receipt Date: 20130601
  Transmission Date: 20140414
  Serious: Yes (Death)
  Sender: FDA-Public Use
  Company Number: TH-ROCHE-1230490

PATIENT
  Age: 83 Year
  Sex: Female

DRUGS (1)
  1. CEFTRIAXONE [Suspect]
     Indication: PRODUCT USED FOR UNKNOWN INDICATION
     Route: 065

REACTIONS (6)
  - Stevens-Johnson syndrome [Fatal]
  - Sepsis [Fatal]
  - Lung infection [Fatal]
  - Shock [Fatal]
  - Skin infection [Fatal]
  - Multi-organ failure [Fatal]
